FAERS Safety Report 16565092 (Version 2)
Quarter: 2019Q3

REPORT INFORMATION
  Report Type: Spontaneous
  Country: BR (occurrence: BR)
  Receive Date: 20190712
  Receipt Date: 20190729
  Transmission Date: 20191004
  Serious: Yes (Death)
  Sender: FDA-Public Use
  Company Number: BR-ROCHE-2307279

PATIENT
  Sex: Female

DRUGS (15)
  1. CYCLOPHOSPHAMIDE. [Suspect]
     Active Substance: CYCLOPHOSPHAMIDE
     Indication: DIFFUSE LARGE B-CELL LYMPHOMA
     Dosage: R-CHOP: 6 CYCLES
     Route: 065
     Dates: start: 20160603, end: 20160920
  2. OXALIPLATIN. [Suspect]
     Active Substance: OXALIPLATIN
     Indication: DIFFUSE LARGE B-CELL LYMPHOMA
     Dosage: R-GMOX: 8 CYCLES
     Route: 065
     Dates: start: 20170510, end: 20171010
  3. CARBOPLATIN. [Suspect]
     Active Substance: CARBOPLATIN
     Indication: DIFFUSE LARGE B-CELL LYMPHOMA
     Route: 065
     Dates: start: 20180228, end: 20180413
  4. CYTARABINE. [Suspect]
     Active Substance: CYTARABINE
     Indication: DIFFUSE LARGE B-CELL LYMPHOMA
     Dosage: R-DHAP: 4 CYCLES
     Route: 065
     Dates: start: 201808, end: 20181106
  5. MABTHERA [Suspect]
     Active Substance: RITUXIMAB
     Indication: DIFFUSE LARGE B-CELL LYMPHOMA
     Dosage: 6 CYCLES R-CHOP
     Route: 065
     Dates: start: 20160603, end: 20160920
  6. VINCRISTINE [Suspect]
     Active Substance: VINCRISTINE
     Indication: DIFFUSE LARGE B-CELL LYMPHOMA
     Dosage: R-CHOP: 6 CYCLES
     Route: 065
     Dates: start: 20160603, end: 20160920
  7. GEMCITABINE. [Suspect]
     Active Substance: GEMCITABINE
     Indication: DIFFUSE LARGE B-CELL LYMPHOMA
     Dosage: R-GMOX: 8 CYCLES
     Route: 065
     Dates: start: 20170510, end: 20171010
  8. DEXAMETHASONE. [Suspect]
     Active Substance: DEXAMETHASONE
     Indication: DIFFUSE LARGE B-CELL LYMPHOMA
     Dosage: R-DHAP: 4 CYCLES
     Route: 065
     Dates: start: 201808, end: 20181106
  9. CISPLATIN. [Suspect]
     Active Substance: CISPLATIN
     Indication: DIFFUSE LARGE B-CELL LYMPHOMA
     Route: 065
     Dates: start: 201808, end: 20181106
  10. MABTHERA [Suspect]
     Active Substance: RITUXIMAB
     Dosage: 8 CYCLES R-GMOX
     Route: 065
     Dates: start: 20170510, end: 20171010
  11. MABTHERA [Suspect]
     Active Substance: RITUXIMAB
     Dosage: 4 CYCLES R-DHAP
     Route: 065
     Dates: start: 201808, end: 20181106
  12. DOXORUBICIN [Suspect]
     Active Substance: DOXORUBICIN
     Indication: DIFFUSE LARGE B-CELL LYMPHOMA
     Dosage: R-CHOP: 6 CYCLES
     Route: 065
     Dates: start: 20160603, end: 20160920
  13. PREDNISONE. [Suspect]
     Active Substance: PREDNISONE
     Indication: DIFFUSE LARGE B-CELL LYMPHOMA
     Dosage: R-CHOP: 6 CYCLES
     Route: 065
     Dates: start: 20160603, end: 20160920
  14. IFOSFAMIDE. [Suspect]
     Active Substance: IFOSFAMIDE
     Indication: DIFFUSE LARGE B-CELL LYMPHOMA
     Dosage: ICE: 3 CYCLES
     Route: 065
     Dates: start: 20180228, end: 20180413
  15. ETOPOSIDE. [Suspect]
     Active Substance: ETOPOSIDE
     Indication: DIFFUSE LARGE B-CELL LYMPHOMA
     Dosage: ICE: 3 CYCLES
     Route: 065
     Dates: start: 20180228, end: 20180413

REACTIONS (1)
  - Death [Fatal]
